FAERS Safety Report 9008642 (Version 2)
Quarter: 2013Q1

REPORT INFORMATION
  Report Type: Spontaneous
  Country: FR (occurrence: FR)
  Receive Date: 20130111
  Receipt Date: 20130124
  Transmission Date: 20140127
  Serious: Yes (Hospitalization, Other)
  Sender: FDA-Public Use
  Company Number: FR-BRISTOL-MYERS SQUIBB COMPANY-17262494

PATIENT
  Age: 58 Year
  Sex: Male

DRUGS (5)
  1. REYATAZ CAPS 300 MG [Suspect]
     Indication: HIV INFECTION
     Route: 048
     Dates: start: 20040823, end: 20120427
  2. NORVIR [Suspect]
     Indication: HIV INFECTION
     Dates: start: 20040823
  3. ZIAGEN [Suspect]
     Indication: HIV INFECTION
     Dosage: FILM-COATED TABLET, 600 MG ONCE DAILY FROM 23-AUG-2004
     Dates: start: 20040823
  4. CELSENTRI [Suspect]
     Indication: HIV INFECTION
     Dosage: FILM-COATED TABLET 150 MG TWICE DAILY ORALLY FOR HIV.
     Route: 048
  5. VIREAD [Suspect]
     Indication: HIV INFECTION

REACTIONS (5)
  - Cholelithiasis [Recovered/Resolved]
  - Hyperbilirubinaemia [Recovered/Resolved]
  - Hydrocholecystis [Recovered/Resolved]
  - Cholecystitis [Recovered/Resolved]
  - Tooth disorder [Unknown]
